FAERS Safety Report 24353525 (Version 3)
Quarter: 2025Q2

REPORT INFORMATION
  Report Type: Spontaneous
  Country: US (occurrence: US)
  Receive Date: 20240923
  Receipt Date: 20250620
  Transmission Date: 20250716
  Serious: Yes (Other)
  Sender: PFIZER
  Company Number: US-PFIZER INC-PV202400123770

PATIENT
  Age: 43 Year
  Sex: Female

DRUGS (1)
  1. XELJANZ XR [Suspect]
     Active Substance: TOFACITINIB CITRATE
     Dates: start: 20240912

REACTIONS (4)
  - Neuropathy peripheral [Recovering/Resolving]
  - Pain [Recovering/Resolving]
  - Drug ineffective [Unknown]
  - Therapeutic product effect delayed [Unknown]
